FAERS Safety Report 8880815 (Version 2)
Quarter: 2013Q1

REPORT INFORMATION
  Report Type: Spontaneous
  Country: CA (occurrence: CA)
  Receive Date: 20121101
  Receipt Date: 20130117
  Transmission Date: 20140127
  Serious: Yes (Other)
  Sender: FDA-Public Use
  Company Number: CA-NAPPMUNDI-CAN-2012-0003406

PATIENT
  Sex: Male
  Weight: 90.7 kg

DRUGS (6)
  1. OXYNEO 40 MG [Suspect]
     Indication: PAIN
     Dosage: 40 MG, BID
     Route: 048
     Dates: start: 20120702, end: 201209
  2. OXYNEO 40 MG [Suspect]
     Dosage: 40 MG, HS
     Route: 048
     Dates: start: 201209
  3. OXYCODONE HCL CONTROLLED-RELEASE [Suspect]
     Indication: PAIN
  4. SUPEUDOL [Suspect]
     Indication: PAIN
     Route: 048
  5. ENTERIC COATED PILL [Concomitant]
     Indication: GASTROOESOPHAGEAL REFLUX DISEASE
     Dosage: UNK
  6. NATURAL HEALTH PRODUCTS [Concomitant]
     Indication: PRODUCT USED FOR UNKNOWN INDICATION
     Dosage: UNK

REACTIONS (19)
  - Drug ineffective [Recovered/Resolved]
  - Gastrointestinal obstruction [Recovered/Resolved]
  - Hernia [Recovered/Resolved]
  - Rectal haemorrhage [Recovered/Resolved]
  - Abnormal faeces [Recovered/Resolved]
  - Foreign body [Recovered/Resolved]
  - Blood urine present [Recovered/Resolved]
  - Drug hypersensitivity [Recovered/Resolved]
  - Constipation [Recovered/Resolved]
  - Drug withdrawal syndrome [Recovered/Resolved]
  - Abdominal pain upper [Not Recovered/Not Resolved]
  - Abdominal distension [Not Recovered/Not Resolved]
  - Malaise [Recovered/Resolved]
  - Decreased appetite [Recovered/Resolved]
  - Pruritus [Recovered/Resolved]
  - Glossodynia [Recovered/Resolved]
  - Nausea [Recovered/Resolved]
  - Weight increased [Recovered/Resolved]
  - Headache [Not Recovered/Not Resolved]
